FAERS Safety Report 21956406 (Version 1)
Quarter: 2023Q1

REPORT INFORMATION
  Report Type: Spontaneous
  Country: JP (occurrence: JP)
  Receive Date: 20230206
  Receipt Date: 20230206
  Transmission Date: 20230418
  Serious: Yes (Other)
  Sender: FDA-Public Use
  Company Number: JP-BRISTOL-MYERS SQUIBB COMPANY-2023-015645

PATIENT
  Age: 89 Year
  Sex: Female
  Weight: 54 kg

DRUGS (1)
  1. ELIQUIS [Suspect]
     Active Substance: APIXABAN
     Indication: Cerebrovascular accident prophylaxis
     Route: 048
     Dates: start: 2022

REACTIONS (3)
  - Aortic stenosis [Unknown]
  - Atrial thrombosis [Unknown]
  - Cerebral infarction [Recovered/Resolved]
